FAERS Safety Report 20226389 (Version 5)
Quarter: 2022Q3

REPORT INFORMATION
  Report Type: Other
  Country: BR (occurrence: BR)
  Receive Date: 20211224
  Receipt Date: 20220701
  Transmission Date: 20221027
  Serious: Yes (Other)
  Sender: FDA-Public Use
  Company Number: BR-002147023-NVSC2021BR289557

PATIENT
  Age: 60 Year
  Sex: Male

DRUGS (10)
  1. XOLAIR [Suspect]
     Active Substance: OMALIZUMAB
     Indication: Chronic spontaneous urticaria
     Dosage: 300 MG, QMO
     Route: 065
     Dates: start: 20190917
  2. XOLAIR [Suspect]
     Active Substance: OMALIZUMAB
     Dosage: 300 MG (EVERY 35 DAYS)
     Route: 065
     Dates: start: 2021
  3. XOLAIR [Suspect]
     Active Substance: OMALIZUMAB
     Dosage: 300 MG (EVERY 40 DAYS)
     Route: 065
  4. XOLAIR [Suspect]
     Active Substance: OMALIZUMAB
     Dosage: 300 MG (EVERY 45 DAYS)
     Route: 065
  5. XOLAIR [Suspect]
     Active Substance: OMALIZUMAB
     Dosage: 300 MG (EVERY 50 DAYS)
     Route: 058
  6. XOLAIR [Suspect]
     Active Substance: OMALIZUMAB
     Dosage: 300 MG (EVERY 52 DAYS)
     Route: 065
  7. XOLAIR [Suspect]
     Active Substance: OMALIZUMAB
     Dosage: 300 MG (EVERY 40 DAYS)
     Route: 065
  8. XOLAIR [Suspect]
     Active Substance: OMALIZUMAB
     Dosage: UNK
     Route: 065
     Dates: start: 20211112
  9. PANTOPRAZOLE [Suspect]
     Active Substance: PANTOPRAZOLE
     Indication: Gastrointestinal disorder
     Dosage: UNK
     Route: 065
  10. OMEPRAZOLE [Suspect]
     Active Substance: OMEPRAZOLE
     Indication: Gastrointestinal disorder
     Dosage: (SPORADICALLY)
     Route: 065

REACTIONS (9)
  - Intestinal obstruction [Not Recovered/Not Resolved]
  - Constipation [Unknown]
  - Rash macular [Not Recovered/Not Resolved]
  - Alopecia [Not Recovered/Not Resolved]
  - Pruritus [Not Recovered/Not Resolved]
  - Pigmentation disorder [Recovered/Resolved]
  - Ill-defined disorder [Unknown]
  - Urticaria [Recovered/Resolved]
  - Inappropriate schedule of product administration [Unknown]

NARRATIVE: CASE EVENT DATE: 20210101
